FAERS Safety Report 19454753 (Version 1)
Quarter: 2021Q2

REPORT INFORMATION
  Report Type: Spontaneous
  Country: CN (occurrence: CN)
  Receive Date: 20210623
  Receipt Date: 20210623
  Transmission Date: 20210717
  Serious: Yes (Hospitalization)
  Sender: FDA-Public Use
  Company Number: CN-UCBSA-2021029845

PATIENT
  Age: 7 Year
  Sex: Female

DRUGS (1)
  1. LACOSAMIDE. [Suspect]
     Active Substance: LACOSAMIDE
     Indication: EPILEPSY
     Dosage: 25 MILLIGRAM, ONCE DAILY (TABLET)
     Route: 048
     Dates: start: 20210525, end: 20210603

REACTIONS (4)
  - Pyrexia [Unknown]
  - Underdose [Unknown]
  - Rash maculo-papular [Recovered/Resolved]
  - Product use issue [Unknown]

NARRATIVE: CASE EVENT DATE: 20210525
